FAERS Safety Report 8444340-8 (Version None)
Quarter: 2012Q2

REPORT INFORMATION
  Report Type: 
  Country: None (occurrence: None)
  Receive Date: 20120618
  Receipt Date: 20120613
  Transmission Date: 20120825
  Serious: Yes (Other)
  Sender: FDA-Public Use
  Company Number: US-BAYER-2012-041964

PATIENT
  Age: 66 Year
  Sex: Female

DRUGS (3)
  1. METFORMIN HCL [Concomitant]
     Indication: DIABETES MELLITUS
     Route: 048
  2. COUMADIN [Concomitant]
     Indication: ATRIAL FIBRILLATION
     Route: 048
  3. NEXAVAR [Suspect]
     Indication: RENAL CELL CARCINOMA
     Dosage: 400 MG, BID
     Dates: start: 20120417

REACTIONS (13)
  - ALOPECIA [None]
  - WEIGHT DECREASED [None]
  - ABDOMINAL PAIN [None]
  - DERMATITIS BULLOUS [None]
  - BLOOD URINE PRESENT [None]
  - DIARRHOEA [None]
  - DYSGEUSIA [None]
  - SKIN EXFOLIATION [None]
  - FLATULENCE [None]
  - RASH [None]
  - ABDOMINAL DISCOMFORT [None]
  - DECREASED APPETITE [None]
  - HAIR TEXTURE ABNORMAL [None]
